FAERS Safety Report 8565404-4 (Version None)
Quarter: 2012Q3

REPORT INFORMATION
  Report Type: 
  Country: None (occurrence: None)
  Receive Date: 20120803
  Receipt Date: 20110905
  Transmission Date: 20120928
  Serious: Yes (Death, Life-Threatening)
  Sender: FDA-Public Use
  Company Number: CN-ROCHE-800553

PATIENT
  Age: 58 Year
  Sex: Male
  Weight: 60 kg

DRUGS (3)
  1. AVASTIN [Suspect]
     Indication: COLORECTAL CANCER
     Dosage: STRENGTH FORM WAS 100MG/4ML
     Route: 042
     Dates: start: 20110624, end: 20110815
  2. CHEMOTHERAPY NOS [Concomitant]
     Indication: COLORECTAL CANCER
  3. XELODA [Suspect]
     Indication: COLORECTAL CANCER

REACTIONS (5)
  - JAUNDICE [None]
  - BLOOD BILIRUBIN INCREASED [None]
  - COLORECTAL CANCER METASTATIC [None]
  - ASCITES [None]
  - HYPERTENSION [None]
